FAERS Safety Report 4314968-5 (Version None)
Quarter: 2004Q1

REPORT INFORMATION
  Report Type: 
  Country: None (occurrence: None)
  Receive Date: 20040310
  Receipt Date: 20040310
  Transmission Date: 20041129
  Serious: Yes (Other)
  Sender: FDA-Public Use
  Company Number: None

PATIENT
  Sex: Female

DRUGS (1)
  1. MORPHINE [Suspect]
     Indication: CHEST PAIN
     Dosage: 4 MG-ONE TIME
     Dates: start: 20040105

REACTIONS (2)
  - ERYTHEMA [None]
  - MEDICATION ERROR [None]
